FAERS Safety Report 26021749 (Version 1)
Quarter: 2025Q4

REPORT INFORMATION
  Report Type: Spontaneous
  Country: EG (occurrence: EG)
  Receive Date: 20251110
  Receipt Date: 20251110
  Transmission Date: 20260118
  Serious: Yes (Other)
  Sender: HIKMA
  Company Number: EG-HIKMA PHARMACEUTICALS-EG-H14001-25-11799

PATIENT
  Age: 70 Year
  Sex: Female

DRUGS (5)
  1. CARBOPLATIN [Suspect]
     Active Substance: CARBOPLATIN
     Indication: Breast cancer
     Dosage: 599 MILLIGRAM, 3W, DAY 1, 8, 15, CYCLE 1, DAY 1
     Route: 042
     Dates: start: 20250629
  2. CARBOPLATIN [Suspect]
     Active Substance: CARBOPLATIN
     Dosage: 599 MILLIGRAM, 3W, DAY 1, 8, 15, CYCLE 1, DAY 15
     Route: 042
     Dates: start: 20250721
  3. CARBOPLATIN [Suspect]
     Active Substance: CARBOPLATIN
     Dosage: 599 MILLIGRAM, 3W, DAY 1, 8, 15, CYCLE 3
     Route: 042
     Dates: start: 20250908
  4. PACLITAXEL [Suspect]
     Active Substance: PACLITAXEL
     Indication: Breast cancer
     Dosage: 136 MILLIGRAM (DAY 1,8,15 AND EVERY 21 DAYS) (CYCLE 1)
     Route: 042
  5. PACLITAXEL [Suspect]
     Active Substance: PACLITAXEL
     Dosage: 136 MILLIGRAM (DAY 1,8,15 AND EVERY 21 DAYS) (CYCLE 3)
     Route: 042
     Dates: start: 20250908

REACTIONS (4)
  - Neutropenia [Unknown]
  - Leukopenia [Unknown]
  - Vomiting [Not Recovered/Not Resolved]
  - Bone pain [Not Recovered/Not Resolved]

NARRATIVE: CASE EVENT DATE: 20250731
